FAERS Safety Report 6703044-X (Version None)
Quarter: 2010Q2

REPORT INFORMATION
  Report Type: 
  Country: None (occurrence: None)
  Receive Date: 20100427
  Receipt Date: 20100419
  Transmission Date: 20101027
  Serious: Yes (Hospitalization)
  Sender: FDA-Public Use
  Company Number: 2010SP015854

PATIENT
  Age: 46 Year
  Sex: Male

DRUGS (6)
  1. PEG-INTRON [Suspect]
     Indication: HEPATITIS C
     Dosage: 150 MCG;QW;IM
     Dates: start: 20100201
  2. RIBAVIRIN [Suspect]
     Indication: HEPATITIS C
     Dosage: 1400 MG;QD;PO
     Route: 048
     Dates: start: 20100207
  3. PEGASYS [Suspect]
     Indication: HEPATITIS C
  4. LORTAB [Concomitant]
  5. GLIMIPERIDE [Concomitant]
  6. JANUVIA [Concomitant]

REACTIONS (3)
  - DEEP VEIN THROMBOSIS [None]
  - DRUG INTERACTION [None]
  - PULMONARY EMBOLISM [None]
